FAERS Safety Report 21215761 (Version 1)
Quarter: 2022Q3

REPORT INFORMATION
  Report Type: Spontaneous
  Country: CA (occurrence: CA)
  Receive Date: 20220816
  Receipt Date: 20220816
  Transmission Date: 20221026
  Serious: Yes (Hospitalization, Other)
  Sender: FDA-Public Use
  Company Number: None

PATIENT
  Age: 48 Year
  Sex: Female

DRUGS (1)
  1. RAMIPRIL [Suspect]
     Active Substance: RAMIPRIL
     Indication: Product used for unknown indication
     Dosage: 1 EVERY 1 DAYS
     Route: 048

REACTIONS (9)
  - Asthenia [Unknown]
  - Electrolyte imbalance [Unknown]
  - Failure to thrive [Unknown]
  - Hyponatraemia [Unknown]
  - Hypophagia [Unknown]
  - Hypotonia [Unknown]
  - Hypovolaemia [Unknown]
  - Nausea [Unknown]
  - Vomiting [Unknown]
